FAERS Safety Report 4550616-7 (Version None)
Quarter: 2004Q4

REPORT INFORMATION
  Report Type: 
  Country: None (occurrence: None)
  Receive Date: 20041227
  Receipt Date: 20040924
  Transmission Date: 20050328
  Serious: No
  Sender: FDA-Public Use
  Company Number: 04P-163-0274610-00

PATIENT
  Age: 61 Year
  Sex: Male
  Weight: 89.8122 kg

DRUGS (12)
  1. HUMIRA [Suspect]
     Indication: RHEUMATOID ARTHRITIS
     Dosage: 40 MG, 1 IN 2 WK, SUBCUTANEOUS
     Route: 058
     Dates: start: 20040917
  2. CELECOXIB [Concomitant]
  3. PREDNISONE [Concomitant]
  4. METHOTREXATE [Concomitant]
  5. ISONIAZID [Concomitant]
  6. ASCORBIC ACID [Concomitant]
  7. SIMVASTATIN [Concomitant]
  8. ENALAPRIL MALEATE [Concomitant]
  9. ASPIRIN [Concomitant]
  10. ESOMEPRAZOLE [Concomitant]
  11. GLUCOSAMINE [Concomitant]
  12. B-KOMPLEX ^LECIVA^ [Concomitant]

REACTIONS (1)
  - INJECTION SITE PAIN [None]
